FAERS Safety Report 18961744 (Version 12)
Quarter: 2021Q4

REPORT INFORMATION
  Report Type: Spontaneous
  Country: CA (occurrence: CA)
  Receive Date: 20210302
  Receipt Date: 20211103
  Transmission Date: 20220303
  Serious: Yes (Hospitalization, Other)
  Sender: FDA-Public Use
  Company Number: CA-CELLTRION INC.-2020CA033254

PATIENT

DRUGS (10)
  1. INFLECTRA [Suspect]
     Active Substance: INFLIXIMAB-DYYB
     Indication: Colitis ulcerative
     Dosage: 1 DF (UNKNOWN DOSE)
     Route: 042
     Dates: start: 20201108, end: 20201108
  2. INFLECTRA [Suspect]
     Active Substance: INFLIXIMAB-DYYB
     Dosage: 500 MG WEEK 2, 6 AND THEN EVERY 8 WEEKS
     Route: 042
     Dates: start: 20201124
  3. INFLECTRA [Suspect]
     Active Substance: INFLIXIMAB-DYYB
     Dosage: 500 MG WEEK 2, 6 AND THEN EVERY 8 WEEKS
     Route: 042
     Dates: start: 20201223
  4. INFLECTRA [Suspect]
     Active Substance: INFLIXIMAB-DYYB
     Dosage: 500 MG WEEK 2, 6 AND THEN EVERY 8 WEEKS
     Route: 042
     Dates: start: 20201223, end: 20210212
  5. INFLECTRA [Suspect]
     Active Substance: INFLIXIMAB-DYYB
     Dosage: 500 MG WEEK 2, 6 AND THEN EVERY 8 WEEKS
     Route: 042
     Dates: start: 20210219
  6. INFLECTRA [Suspect]
     Active Substance: INFLIXIMAB-DYYB
     Dosage: 500 MG WEEK 2, 6 AND THEN EVERY 8 WEEKS
     Route: 042
     Dates: start: 20210414
  7. INFLECTRA [Suspect]
     Active Substance: INFLIXIMAB-DYYB
     Dosage: 500 MG WEEK 2, 6 AND THEN EVERY 8 WEEKS
     Route: 042
     Dates: start: 20210416
  8. INFLECTRA [Suspect]
     Active Substance: INFLIXIMAB-DYYB
     Dosage: 1000 MG EVERY 4 WEEKS
     Route: 042
     Dates: start: 20210527, end: 20210527
  9. INFLECTRA [Suspect]
     Active Substance: INFLIXIMAB-DYYB
     Dosage: 1000 MG EVERY 4 WEEKS
     Route: 042
     Dates: start: 20210622, end: 20210622
  10. INFLECTRA [Suspect]
     Active Substance: INFLIXIMAB-DYYB
     Dosage: 1000 MG EVERY 4 WEEKS
     Route: 042
     Dates: start: 20210720, end: 20210720

REACTIONS (8)
  - Condition aggravated [Not Recovered/Not Resolved]
  - Weight increased [Unknown]
  - Clostridium difficile infection [Unknown]
  - Heart rate decreased [Unknown]
  - Weight decreased [Unknown]
  - Inappropriate schedule of product administration [Unknown]
  - Off label use [Unknown]
  - Off label use [Unknown]

NARRATIVE: CASE EVENT DATE: 20201124
